FAERS Safety Report 5595849-6 (Version None)
Quarter: 2008Q1

REPORT INFORMATION
  Report Type: 
  Country: None (occurrence: None)
  Receive Date: 20080118
  Receipt Date: 20080111
  Transmission Date: 20080703
  Serious: Yes (Disabling)
  Sender: FDA-Public Use
  Company Number: US-ROCHE-495580

PATIENT
  Age: 17 Year
  Sex: Male
  Weight: 77.1 kg

DRUGS (3)
  1. ACCUTANE [Suspect]
     Indication: ACNE
     Route: 048
     Dates: start: 20000616, end: 20000801
  2. ACCUTANE [Suspect]
     Dosage: 40 MG ALTERNATING WITH 80 MG EVERY OTHER DAY.
     Route: 048
     Dates: start: 20000801, end: 20000801
  3. ACCUTANE [Suspect]
     Route: 048
     Dates: start: 20000901, end: 20001201

REACTIONS (4)
  - COLITIS ULCERATIVE [None]
  - DIARRHOEA [None]
  - FOOD POISONING [None]
  - STOMACH DISCOMFORT [None]
